FAERS Safety Report 23631070 (Version 1)
Quarter: 2024Q1

REPORT INFORMATION
  Report Type: Spontaneous
  Country: US (occurrence: US)
  Receive Date: 20240314
  Receipt Date: 20240314
  Transmission Date: 20240409
  Serious: Yes (Life-Threatening, Hospitalization)
  Sender: FDA-Public Use
  Company Number: US-MYLANLABS-2024M1023000

PATIENT
  Age: 68 Year
  Sex: Female

DRUGS (2)
  1. CARVEDILOL [Suspect]
     Active Substance: CARVEDILOL
     Indication: Hypertensive urgency
     Dosage: UNK, INITIAL DOSAGE NOT STATED (RECEIVING?5?DAYS PRIOR)
     Route: 065
  2. CARVEDILOL [Suspect]
     Active Substance: CARVEDILOL
     Dosage: 25 MILLIGRAM, QID
     Route: 065

REACTIONS (6)
  - Toxicity to various agents [Recovering/Resolving]
  - Hypotension [Recovering/Resolving]
  - Bradycardia [Recovering/Resolving]
  - Electrocardiogram ST segment elevation [Recovering/Resolving]
  - Lethargy [Unknown]
  - Moaning [Unknown]
